FAERS Safety Report 9879029 (Version 1)
Quarter: 2014Q1

REPORT INFORMATION
  Report Type: Spontaneous
  Country: US (occurrence: US)
  Receive Date: 20140206
  Receipt Date: 20140206
  Transmission Date: 20141002
  Serious: No
  Sender: FDA-Public Use
  Company Number: US-ALLERGAN-1313101US

PATIENT
  Age: 69 Year
  Sex: Female

DRUGS (4)
  1. BOTOX [Suspect]
     Indication: HEADACHE
     Dosage: UNK, SINGLE
     Route: 030
     Dates: start: 20130626, end: 20130626
  2. BOTOX [Suspect]
     Indication: SPINAL PAIN
  3. STEROID SHOTS NOS [Concomitant]
     Indication: SPINAL DISORDER
     Dosage: UNK
  4. HYDROXYZINE [Concomitant]
     Indication: NERVOUSNESS

REACTIONS (4)
  - Urinary tract infection [Unknown]
  - Rash pruritic [Not Recovered/Not Resolved]
  - Rash pruritic [Not Recovered/Not Resolved]
  - Off label use [Unknown]
